FAERS Safety Report 7575420-7 (Version None)
Quarter: 2011Q2

REPORT INFORMATION
  Report Type: 
  Country: None (occurrence: None)
  Receive Date: 20110627
  Receipt Date: 20110616
  Transmission Date: 20111010
  Serious: Yes (Death)
  Sender: FDA-Public Use
  Company Number: IT-CELGENEUS-083-50794-11051614

PATIENT

DRUGS (1)
  1. VIDAZA [Suspect]
     Dosage: 75 MILLIGRAM
     Route: 050
     Dates: start: 20101001, end: 20101221

REACTIONS (1)
  - DISEASE PROGRESSION [None]
